FAERS Safety Report 18756588 (Version 2)
Quarter: 2021Q1

REPORT INFORMATION
  Report Type: Report from Study
  Country: GB (occurrence: GB)
  Receive Date: 20210119
  Receipt Date: 20210204
  Transmission Date: 20210419
  Serious: Yes (Hospitalization, Other)
  Sender: FDA-Public Use
  Company Number: GB-ACCORD-214982

PATIENT
  Age: 35 Year
  Sex: Female

DRUGS (34)
  1. LORAZEPAM. [Concomitant]
     Active Substance: LORAZEPAM
     Indication: ABDOMINAL PAIN
     Dosage: 1 MILLIGRAM, QD
     Route: 048
     Dates: start: 20201215
  2. DEXAMETHASONE. [Concomitant]
     Active Substance: DEXAMETHASONE
     Indication: ABDOMINAL PAIN
     Dosage: 6 MILLIGRAM, QD
     Route: 048
     Dates: start: 20201215
  3. LEVOMEPROMAZINE [Concomitant]
     Active Substance: LEVOMEPROMAZINE
     Indication: ABDOMINAL PAIN
     Dosage: 3.13 MILLIGRAM
     Route: 058
  4. DOCETAXEL. [Suspect]
     Active Substance: DOCETAXEL
     Indication: HER2 POSITIVE BREAST CANCER
     Dosage: Q3W
     Route: 042
     Dates: start: 20160902, end: 20161115
  5. TRASTUZUMAB. [Suspect]
     Active Substance: TRASTUZUMAB
     Indication: HER2 POSITIVE BREAST CANCER
     Route: 042
     Dates: start: 20161115, end: 20161116
  6. DOCETAXEL. [Suspect]
     Active Substance: DOCETAXEL
     Indication: HER2 POSITIVE BREAST CANCER
     Dosage: Q3W
     Route: 042
     Dates: start: 20160723, end: 20160723
  7. FLUOROURACIL. [Suspect]
     Active Substance: FLUOROURACIL
     Indication: BREAST CANCER
     Dates: start: 20201015, end: 20201112
  8. SALBUTAMOL [Concomitant]
     Active Substance: ALBUTEROL
     Indication: DYSPNOEA
     Dosage: 100 MICROGRAM, QID
     Route: 055
  9. AMLODIPINE [Concomitant]
     Active Substance: AMLODIPINE BESYLATE
     Indication: ABDOMINAL PAIN
     Dosage: 5 MILLIGRAM, QD
     Route: 048
     Dates: start: 20201217
  10. CLOTRIMAZOLE. [Concomitant]
     Active Substance: CLOTRIMAZOLE
     Indication: ABDOMINAL PAIN
     Dosage: 1 PERCENT
     Route: 061
     Dates: start: 20201216
  11. TRASTUZUMAB. [Suspect]
     Active Substance: TRASTUZUMAB
     Indication: HER2 POSITIVE BREAST CANCER
     Dosage: 567 MILLIGRAM, TOTAL(LOADING DOSE DOSE MODIFIED AS SWITCHED TO MAINTANANCE DOSE)
     Route: 042
     Dates: start: 20160722, end: 20160722
  12. ERIBULIN [Suspect]
     Active Substance: ERIBULIN
     Indication: HER2 POSITIVE BREAST CANCER
     Dosage: 1.23 MILLIGRAM/SQ. METER, Q3W
     Route: 042
     Dates: start: 20190516, end: 20190516
  13. DENOSUMAB [Concomitant]
     Active Substance: DENOSUMAB
     Indication: METASTASES TO BONE
     Dosage: 120 MILLIGRAM, Q3W
     Route: 042
     Dates: start: 20160721
  14. TRASTUZUMAB. [Suspect]
     Active Substance: TRASTUZUMAB
     Indication: HER2 POSITIVE BREAST CANCER
     Dosage: Q3W
     Route: 042
     Dates: start: 20171212, end: 20180817
  15. XGEVA [Suspect]
     Active Substance: DENOSUMAB
     Indication: METASTASES TO BONE
     Dosage: 120 MILLIGRAM, Q3WK
     Route: 042
     Dates: start: 20160721
  16. VENLAFAXINE/VENLAFAXINE HYDROCHLORIDE [Concomitant]
     Active Substance: VENLAFAXINE HYDROCHLORIDE
     Indication: ABDOMINAL PAIN
     Dosage: 75 MILLIGRAM, BID
     Route: 048
     Dates: start: 20201215
  17. BENZYDAMINE [Concomitant]
     Active Substance: BENZYDAMINE
     Dosage: 0.15 PERCENT, QID
     Route: 048
  18. DOCETAXEL. [Suspect]
     Active Substance: DOCETAXEL
     Indication: HER2 POSITIVE BREAST CANCER
     Dosage: Q3W
     Route: 042
     Dates: start: 20160812, end: 20160812
  19. TRASTUZUMAB. [Suspect]
     Active Substance: TRASTUZUMAB
     Indication: HER2 POSITIVE BREAST CANCER
     Route: 042
     Dates: start: 20160812, end: 20161017
  20. MIDAZOLAM. [Concomitant]
     Active Substance: MIDAZOLAM
     Indication: ABDOMINAL PAIN
     Dosage: 2.5 MILLIGRAM
     Route: 058
  21. OXYCODONE/OXYCODONE HYDROCHLORIDE/OXYCODONE PECTINATE/OXYCODONE TEREPHTHALATE [Concomitant]
     Active Substance: OXYCODONE
     Indication: ABDOMINAL PAIN
     Dosage: 10 MILLIGRAM
     Route: 058
  22. SENNA ALEXANDRINA [Concomitant]
     Active Substance: SENNA LEAF
     Indication: ABDOMINAL PAIN
     Route: 048
     Dates: start: 20201215
  23. CAPECITABINE. [Suspect]
     Active Substance: CAPECITABINE
     Indication: HER2 POSITIVE BREAST CANCER
     Dosage: 1950 MILLIGRAM, BID
     Route: 048
     Dates: start: 20180905, end: 20190327
  24. BECLOMETASONE [Concomitant]
     Active Substance: BECLOMETHASONE DIPROPIONATE
     Indication: PYREXIA
     Dosage: 200 MILLIGRAM, BID
     Route: 055
  25. HALOPERIDOL. [Concomitant]
     Active Substance: HALOPERIDOL
     Indication: ABDOMINAL PAIN
     Dosage: 0.5 MILLIGRAM
     Route: 058
  26. LANSOPRAZOLE. [Concomitant]
     Active Substance: LANSOPRAZOLE
     Indication: ABDOMINAL PAIN
     Dosage: 30 MILLIGRAM, QD
     Route: 048
     Dates: start: 20201215
  27. PERTUZUMAB. [Suspect]
     Active Substance: PERTUZUMAB
     Indication: HER2 POSITIVE BREAST CANCER
     Dosage: 840 MILLIGRAM, TOTAL(LOADING DOSE DOSE MODIFIED AS SWITCHED TO MAINTENACE DOSE)
     Route: 042
     Dates: start: 20160721, end: 20160722
  28. GABAPENTIN. [Concomitant]
     Active Substance: GABAPENTIN
     Indication: ABDOMINAL PAIN
     Dosage: 400 MILLIGRAM, TID
     Dates: start: 20201215
  29. EPIRUBICIN [Suspect]
     Active Substance: EPIRUBICIN
     Indication: BREAST CANCER METASTATIC
     Dosage: 22.5 MILLIGRAM/SQ. METER, QW
     Route: 042
     Dates: start: 20200512, end: 20200820
  30. CYCLOPHOSPHAMIDE/CYCLOPHOSPHAMIDE MONOHYDRATE [Suspect]
     Active Substance: CYCLOPHOSPHAMIDE
     Indication: BREAST CANCER
     Dates: start: 20201015, end: 20201015
  31. PERTUZUMAB. [Suspect]
     Active Substance: PERTUZUMAB
     Indication: HER2 POSITIVE BREAST CANCER
     Dosage: 420 MILLIGRAM, Q3W(MAINTENANCE DOSE)
     Route: 042
     Dates: start: 20160811
  32. SODIUM CHLORIDE. [Concomitant]
     Active Substance: SODIUM CHLORIDE
     Indication: ABDOMINAL PAIN
     Dosage: 0.9 PERCENT
     Route: 042
     Dates: start: 20201215
  33. DOCUSATE/DOCUSATE CALCIUM/DOCUSATE POTASSIUM/DOCUSATE SODIUM [Concomitant]
     Active Substance: DOCUSATE
     Indication: ABDOMINAL PAIN
     Dosage: 200 MILLIGRAM, BID
     Route: 048
     Dates: start: 20201215
  34. GLYCOPYRRONIUM [Concomitant]
     Active Substance: GLYCOPYRRONIUM
     Indication: ABDOMINAL PAIN
     Dosage: 200 MILLIGRAM
     Route: 058

REACTIONS (3)
  - Headache [Recovered/Resolved]
  - Pyrexia [Recovered/Resolved]
  - Neutropenia [Recovered/Resolved]

NARRATIVE: CASE EVENT DATE: 20190114
